FAERS Safety Report 13256858 (Version 1)
Quarter: 2017Q1

REPORT INFORMATION
  Report Type: Spontaneous
  Country: US (occurrence: US)
  Receive Date: 20170221
  Receipt Date: 20170221
  Transmission Date: 20170428
  Serious: No
  Sender: FDA-Public Use
  Company Number: US-SHIRE-US201701879

PATIENT
  Age: 24 Year
  Sex: Male
  Weight: 68.27 kg

DRUGS (1)
  1. ADDERALL XR [Suspect]
     Active Substance: AMPHETAMINE ASPARTATE\AMPHETAMINE SULFATE\DEXTROAMPHETAMINE SACCHARATE\DEXTROAMPHETAMINE SULFATE
     Indication: NARCOLEPSY
     Dosage: UNK UNK, OTHER (2 OR 3 20MG TABLETS DAILY)
     Route: 048
     Dates: start: 20161216

REACTIONS (3)
  - Prescribed overdose [Not Recovered/Not Resolved]
  - Erectile dysfunction [Unknown]
  - Product use issue [Not Recovered/Not Resolved]

NARRATIVE: CASE EVENT DATE: 20161216
